FAERS Safety Report 8027609-0 (Version None)
Quarter: 2012Q1

REPORT INFORMATION
  Report Type: 
  Country: None (occurrence: None)
  Receive Date: 20120105
  Receipt Date: 20120105
  Transmission Date: 20120608
  Serious: Yes (Hospitalization, Other)
  Sender: FDA-Public Use
  Company Number: None

PATIENT
  Age: 83 Year
  Sex: Male
  Weight: 80 kg

DRUGS (2)
  1. DAPTOMYCIN [Suspect]
     Indication: OSTEOMYELITIS
     Dosage: 480 MG OTHER IV
     Route: 042
     Dates: start: 20110507, end: 20110525
  2. VANCOMYCIN [Suspect]
     Dosage: 1250 MG OTHER IV
     Route: 042
     Dates: start: 20110408, end: 20110506

REACTIONS (3)
  - MYOSITIS [None]
  - RENAL FAILURE [None]
  - BLOOD CREATINE PHOSPHOKINASE INCREASED [None]
